FAERS Safety Report 5834286-3 (Version None)
Quarter: 2008Q3

REPORT INFORMATION
  Report Type: 
  Country: None (occurrence: None)
  Receive Date: 20080805
  Receipt Date: 20080730
  Transmission Date: 20090109
  Serious: Yes (Other)
  Sender: FDA-Public Use
  Company Number: PHHY2008JP16273

PATIENT
  Sex: Male

DRUGS (2)
  1. TEGRETOL [Suspect]
     Route: 048
  2. PAXIL [Concomitant]
     Route: 048

REACTIONS (2)
  - DRUG WITHDRAWAL SYNDROME [None]
  - SEXUAL ACTIVITY INCREASED [None]
